FAERS Safety Report 18165202 (Version 5)
Quarter: 2021Q1

REPORT INFORMATION
  Report Type: Report from Study
  Country: None (occurrence: US)
  Receive Date: 20200819
  Receipt Date: 20210215
  Transmission Date: 20210419
  Serious: Yes (Hospitalization, Other)
  Sender: FDA-Public Use
  Company Number: US-ABBVIE-20K-163-3492814-00

PATIENT
  Age: 38 Year
  Sex: Male
  Weight: 71.73 kg

DRUGS (14)
  1. VALIUM [Concomitant]
     Active Substance: DIAZEPAM
     Indication: ANXIETY
  2. OXYCODONE [Concomitant]
     Active Substance: OXYCODONE
     Indication: BACK PAIN
  3. FLONASE [Concomitant]
     Active Substance: FLUTICASONE PROPIONATE
     Indication: HYPERSENSITIVITY
  4. OXYCODONE [Concomitant]
     Active Substance: OXYCODONE
     Indication: BACK PAIN
  5. BENZONATATE. [Concomitant]
     Active Substance: BENZONATATE
     Indication: COUGH
  6. ALBUTEROL. [Concomitant]
     Active Substance: ALBUTEROL
     Indication: SINUSITIS
  7. PROTONIX [Concomitant]
     Active Substance: PANTOPRAZOLE SODIUM
     Indication: ABDOMINAL DISCOMFORT
  8. OXYCODONE [Concomitant]
     Active Substance: OXYCODONE
     Indication: ARTHRALGIA
  9. FLONASE [Concomitant]
     Active Substance: FLUTICASONE PROPIONATE
     Indication: HYPERSENSITIVITY
  10. HUMIRA [Suspect]
     Active Substance: ADALIMUMAB
     Indication: CROHN^S DISEASE
     Route: 058
     Dates: start: 201907, end: 2020
  11. HUMIRA [Suspect]
     Active Substance: ADALIMUMAB
     Indication: COLITIS ULCERATIVE
     Route: 058
     Dates: start: 2020
  12. OXYCODONE [Concomitant]
     Active Substance: OXYCODONE
     Indication: ARTHRALGIA
  13. PROTONIX [Concomitant]
     Active Substance: PANTOPRAZOLE SODIUM
     Indication: ABDOMINAL DISCOMFORT
  14. ALLEGRA [Concomitant]
     Active Substance: FEXOFENADINE HYDROCHLORIDE
     Indication: HYPERSENSITIVITY

REACTIONS (27)
  - Dehydration [Recovered/Resolved]
  - Mobility decreased [Unknown]
  - Colitis [Recovering/Resolving]
  - Device issue [Not Recovered/Not Resolved]
  - Emotional distress [Unknown]
  - Sleep disorder [Recovering/Resolving]
  - Blindness [Not Recovered/Not Resolved]
  - Eye disorder [Not Recovered/Not Resolved]
  - Nephrolithiasis [Recovered/Resolved]
  - Off label use [Unknown]
  - Insomnia [Unknown]
  - Depressed mood [Not Recovered/Not Resolved]
  - Nervousness [Unknown]
  - Dry mouth [Recovering/Resolving]
  - Nausea [Not Recovered/Not Resolved]
  - Colitis ulcerative [Recovered/Resolved]
  - Anal incontinence [Not Recovered/Not Resolved]
  - General physical health deterioration [Unknown]
  - Stress [Recovering/Resolving]
  - Gastrointestinal pain [Not Recovered/Not Resolved]
  - Irritable bowel syndrome [Recovered/Resolved]
  - Irritability [Recovering/Resolving]
  - Depressed mood [Recovering/Resolving]
  - Clostridium difficile infection [Recovered/Resolved]
  - Anxiety [Recovering/Resolving]
  - Impatience [Recovering/Resolving]
  - Glaucoma [Unknown]

NARRATIVE: CASE EVENT DATE: 2020
